FAERS Safety Report 6385996-3 (Version None)
Quarter: 2009Q3

REPORT INFORMATION
  Report Type: 
  Country: None (occurrence: None)
  Receive Date: 20090929
  Receipt Date: 20080908
  Transmission Date: 20100115
  Serious: Yes (Other)
  Sender: FDA-Public Use
  Company Number: 14327720

PATIENT
  Age: 51 Year
  Sex: Male

DRUGS (2)
  1. DEFINITY [Suspect]
     Dosage: 2 ML
  2. WELLBUTRIN [Concomitant]

REACTIONS (2)
  - DIZZINESS [None]
  - SYNCOPE [None]
